FAERS Safety Report 5631251-6 (Version None)
Quarter: 2008Q1

REPORT INFORMATION
  Report Type: 
  Country: None (occurrence: None)
  Receive Date: 20080131
  Receipt Date: 20071121
  Transmission Date: 20080703
  Serious: No
  Sender: FDA-Public Use
  Company Number: 163-21880-07101592

PATIENT
  Age: 78 Year
  Sex: Female

DRUGS (1)
  1. REVLIMID [Suspect]
     Indication: MYELODYSPLASTIC SYNDROME
     Dosage: 5 MG, DAILY 28/28, ORAL
     Route: 048
     Dates: start: 20071006, end: 20071101

REACTIONS (4)
  - DIZZINESS [None]
  - NAUSEA [None]
  - PAIN [None]
  - WEIGHT DECREASED [None]
